FAERS Safety Report 9241004 (Version 1)
Quarter: 2013Q2

REPORT INFORMATION
  Report Type: Spontaneous
  Country: US (occurrence: None)
  Receive Date: 20130418
  Receipt Date: 20130418
  Transmission Date: 20140414
  Serious: No
  Sender: FDA-Public Use
  Company Number: None

PATIENT
  Age: 73 Year
  Sex: Female
  Weight: 63.5 kg

DRUGS (1)
  1. METOPROLOL [Suspect]
     Indication: ARRHYTHMIA
     Dosage: METOPROLOL 100MG DAILY  047
     Route: 048
     Dates: start: 20121014, end: 20121107

REACTIONS (4)
  - Heart rate irregular [None]
  - Drug effect decreased [None]
  - Extrasystoles [None]
  - Product substitution issue [None]
